FAERS Safety Report 10646984 (Version 2)
Quarter: 2015Q1

REPORT INFORMATION
  Report Type: Report from Study
  Country: US (occurrence: US)
  Receive Date: 20141211
  Receipt Date: 20150105
  Transmission Date: 20150720
  Serious: Yes (Death)
  Sender: FDA-Public Use
  Company Number: US-009507513-1412USA004207

PATIENT

DRUGS (2)
  1. INTRON A [Suspect]
     Active Substance: INTERFERON ALFA-2B
     Dosage: 10 MU/M2 (3 TIMES PER WEEK FOR 48 WEEKS)
     Route: 058
  2. INTRON A [Suspect]
     Active Substance: INTERFERON ALFA-2B
     Indication: MALIGNANT MELANOMA
     Dosage: 20 MU/M2 PER DAY (5 DAYS PER WEEK FOR 4 WEEKS)
     Route: 042

REACTIONS (1)
  - Death [Fatal]
